FAERS Safety Report 5458701-2 (Version None)
Quarter: 2007Q3

REPORT INFORMATION
  Report Type: 
  Country: None (occurrence: None)
  Receive Date: 20070919
  Receipt Date: 20070911
  Transmission Date: 20080115
  Serious: Yes (Other)
  Sender: FDA-Public Use
  Company Number: HQWYE050108FEB07

PATIENT
  Sex: Female

DRUGS (1)
  1. PANTOPRAZOLE SODIUM [Suspect]
     Indication: OESOPHAGITIS
     Dosage: 40 MG - FREQUENCY UNSPECIFIED
     Route: 048
     Dates: start: 20070101, end: 20070101

REACTIONS (7)
  - DIARRHOEA [None]
  - DIZZINESS [None]
  - DYSPNOEA [None]
  - MALAISE [None]
  - MUSCLE CONTRACTIONS INVOLUNTARY [None]
  - SPEECH DISORDER [None]
  - TRISMUS [None]
